FAERS Safety Report 12217242 (Version 2)
Quarter: 2016Q2

REPORT INFORMATION
  Report Type: Spontaneous
  Country: US (occurrence: US)
  Receive Date: 20160329
  Receipt Date: 20160523
  Transmission Date: 20160815
  Serious: Yes (Hospitalization)
  Sender: FDA-Public Use
  Company Number: US-PFIZER INC-2016176126

PATIENT
  Age: 20 Year
  Sex: Female
  Weight: 50 kg

DRUGS (4)
  1. POTASSIUM PHENOXYMETHYL PENICILLIN [Suspect]
     Active Substance: PENICILLIN V POTASSIUM
     Dosage: 14 G (28 OF THE 500 MG), EQUIVALENT TO 280 MG/KG
     Route: 048
  2. DIAZEPAM. [Suspect]
     Active Substance: DIAZEPAM
     Dosage: 100 MG, UNK (20 OF THE 5 MG, EQUIVALENT TO 2 MG/KG)
     Route: 048
  3. FLURAZEPAM [Suspect]
     Active Substance: FLURAZEPAM\FLURAZEPAM HYDROCHLORIDE
     Dosage: 360 MG, UNK (12 OF THE 30 MG, EQUIVALENT TO 7 MG/KG)
     Route: 048
  4. METRONIDAZOLE. [Suspect]
     Active Substance: METRONIDAZOLE
     Dosage: 15 G (2 BOTTLES EACH CONTAINING 30 OF THE 250 MG, EQUIVALENT TO 300 MG/KG)
     Route: 048

REACTIONS (2)
  - Depressed level of consciousness [Recovered/Resolved]
  - Intentional overdose [Unknown]
